FAERS Safety Report 6474819-X (Version None)
Quarter: 2009Q4

REPORT INFORMATION
  Report Type: 
  Country: None (occurrence: None)
  Receive Date: 20091130
  Receipt Date: 20091111
  Transmission Date: 20100525
  Serious: Yes (Hospitalization)
  Sender: FDA-Public Use
  Company Number: 2009-4550

PATIENT
  Age: 57 Year
  Sex: Male

DRUGS (3)
  1. SOMATULINE AUTOGEL 120MG (LANREOTIDE) (LANREOTIDE ACETATE) [Suspect]
     Dosage: 120 MG, 1 IN 1 M INTRAMUSCULAR
     Route: 030
     Dates: start: 20080430
  2. ATENOLOL [Concomitant]
  3. COVERSYL (PERINDOPRIL) [Concomitant]

REACTIONS (3)
  - CHOLELITHIASIS [None]
  - PANCREATIC NECROSIS [None]
  - PANCREATITIS [None]
